FAERS Safety Report 16366886 (Version 1)
Quarter: 2019Q3

REPORT INFORMATION
  Report Type: Spontaneous
  Country: US (occurrence: US)
  Receive Date: 20190528
  Receipt Date: 20190528
  Transmission Date: 20191004
  Serious: Yes (Hospitalization)
  Sender: FDA-Public Use
  Company Number: None

PATIENT
  Age: 57 Year
  Sex: Male
  Weight: 121.8 kg

DRUGS (9)
  1. ALBUTEROL NEBULIZER SOLUTION [Concomitant]
     Active Substance: ALBUTEROL
     Dates: start: 20190520
  2. MORPHINE SULFATE. [Suspect]
     Active Substance: MORPHINE SULFATE
     Indication: CHEST PAIN
     Route: 040
  3. FAMOTIDINE IV [Concomitant]
     Dates: start: 20190520
  4. MYLANTA [Concomitant]
     Active Substance: ALUMINUM HYDROXIDE\DIMETHICONE\MAGNESIUM HYDROXIDE
     Dates: start: 20190520
  5. PANTOPRAZOLE IV [Concomitant]
     Active Substance: PANTOPRAZOLE SODIUM
     Dates: start: 20190520
  6. MORPHINE SULFATE. [Suspect]
     Active Substance: MORPHINE SULFATE
     Indication: ABDOMINAL PAIN
     Route: 040
  7. ASPIRIN 81 MG [Concomitant]
     Active Substance: ASPIRIN
     Dates: start: 20190520
  8. ONDANSETRON IV [Concomitant]
     Dates: start: 20190520
  9. CARAFATE [Concomitant]
     Active Substance: SUCRALFATE
     Dates: start: 20190520

REACTIONS (5)
  - Catatonia [None]
  - Sleep disorder [None]
  - Paranoia [None]
  - Moaning [None]
  - Vomiting [None]

NARRATIVE: CASE EVENT DATE: 20190520
